FAERS Safety Report 7852879-9 (Version None)
Quarter: 2011Q4

REPORT INFORMATION
  Report Type: 
  Country: None (occurrence: None)
  Receive Date: 20111026
  Receipt Date: 20111020
  Transmission Date: 20120403
  Serious: Yes (Hospitalization, Other)
  Sender: FDA-Public Use
  Company Number: US-AMGEN-USASP2011043748

PATIENT
  Age: 83 Year
  Sex: Female
  Weight: 65.306 kg

DRUGS (19)
  1. GABAPENTIN [Concomitant]
     Dosage: 100 MG, QHS
     Route: 048
  2. VICODIN [Concomitant]
     Dosage: 500 MG, BID
     Route: 048
     Dates: start: 20100514
  3. PREMARIN [Concomitant]
     Dosage: 0.3 MG, QD
     Route: 048
  4. PERCOCET [Concomitant]
     Dosage: 325 MG, BID
     Route: 048
     Dates: start: 20100615
  5. HUMIRA [Concomitant]
     Dosage: 40 MG, Q2WK
     Dates: start: 20100514
  6. FUROSEMIDE [Concomitant]
     Dosage: UNK
  7. ENBREL [Suspect]
     Indication: RHEUMATOID ARTHRITIS
     Dosage: 50 MG, QWK
     Dates: start: 20090427
  8. FLECTOR                            /00372302/ [Concomitant]
     Dosage: UNK
     Dates: start: 20110218
  9. DARVOCET [Concomitant]
     Dosage: 100 MG, BID
     Route: 048
     Dates: start: 20090923, end: 20100901
  10. CELEBREX [Concomitant]
     Dosage: 50 MG, QD
     Dates: start: 20090710
  11. PAXIL [Concomitant]
     Dosage: UNK
  12. OMEPRAZOLE [Concomitant]
     Dosage: UNK
  13. CLARINEX                           /01202601/ [Concomitant]
     Dosage: UNK
  14. CIPROFLOXACIN [Concomitant]
     Dosage: 500 MG, BID
     Dates: start: 20110427
  15. ZANAFLEX [Concomitant]
     Dosage: UNK
  16. LOTREL [Concomitant]
     Dosage: 5 MG, QD
     Route: 048
  17. MTX                                /00113801/ [Concomitant]
  18. REGLAN [Concomitant]
     Dosage: UNK
  19. POTASSIUM CHLORIDE [Concomitant]
     Dosage: UNK

REACTIONS (23)
  - FALL [None]
  - ROTATOR CUFF SYNDROME [None]
  - GOUT [None]
  - PSORIASIS [None]
  - HYPERSOMNIA [None]
  - BACK PAIN [None]
  - INTERVERTEBRAL DISC DEGENERATION [None]
  - NODULE [None]
  - PAIN IN JAW [None]
  - OESOPHAGEAL DISORDER [None]
  - PAIN IN EXTREMITY [None]
  - OSTEOPOROSIS [None]
  - ANAEMIA [None]
  - CONTUSION [None]
  - DIZZINESS [None]
  - MUSCULOSKELETAL PAIN [None]
  - LACERATION [None]
  - RIB FRACTURE [None]
  - RHEUMATOID ARTHRITIS [None]
  - SCOLIOSIS [None]
  - SKIN DISCOLOURATION [None]
  - FATIGUE [None]
  - OSTEOARTHRITIS [None]
